FAERS Safety Report 4430058-5 (Version None)
Quarter: 2004Q3

REPORT INFORMATION
  Report Type: 
  Country: None (occurrence: None)
  Receive Date: 20040820
  Receipt Date: 20040809
  Transmission Date: 20050211
  Serious: Yes (Other)
  Sender: FDA-Public Use
  Company Number: PHNU2004DE02803

PATIENT
  Age: 63 Year
  Sex: Male
  Weight: 76 kg

DRUGS (8)
  1. CRANOC (LICENSED, FUJISAWA DEUTSCHLAND) [Suspect]
     Dosage: 80 MG, QD
     Route: 048
  2. CONCOR [Concomitant]
  3. COAPROVEL [Concomitant]
  4. NORVASC [Concomitant]
  5. PHYSIOTENS ^GIULINI^ [Concomitant]
  6. XALACOM [Concomitant]
  7. DOXAZOSIN [Concomitant]
  8. SORTIS ^GOEDECKE^ [Concomitant]

REACTIONS (2)
  - INTRAOCULAR PRESSURE INCREASED [None]
  - LENTICULAR OPACITIES [None]
